FAERS Safety Report 23803751 (Version 1)
Quarter: 2024Q2

REPORT INFORMATION
  Report Type: Spontaneous
  Country: US (occurrence: None)
  Receive Date: 20240430
  Receipt Date: 20240430
  Transmission Date: 20240715
  Serious: Yes (Hospitalization)
  Sender: FDA-Public Use
  Company Number: None

PATIENT
  Age: 22 Year
  Sex: Female

DRUGS (12)
  1. IMATINIB [Suspect]
     Active Substance: IMATINIB
     Indication: Acute lymphocytic leukaemia
     Dosage: 600 MG DAILY ORAL ?
     Route: 048
  2. IMATINIB [Suspect]
     Active Substance: IMATINIB
     Dosage: FREQUENCY : DAILY;?
     Route: 048
  3. MERCAPTOPURINE [Concomitant]
     Indication: Acute lymphocytic leukaemia
     Dosage: 50 MG DAILY ORAL
  4. METHOTREXATE [Concomitant]
     Active Substance: METHOTREXATE
  5. PREDNISONE [Concomitant]
     Active Substance: PREDNISONE
  6. FAMOTIDINE [Concomitant]
     Active Substance: FAMOTIDINE
  7. VALACYCLOVIR [Concomitant]
     Active Substance: VALACYCLOVIR HYDROCHLORIDE
  8. SERTRAINE [Concomitant]
  9. FIORICET [Concomitant]
     Active Substance: ACETAMINOPHEN\BUTALBITAL\CAFFEINE
  10. GABAPENTIN [Concomitant]
     Active Substance: GABAPENTIN
  11. PEPCID [Concomitant]
     Active Substance: FAMOTIDINE
  12. TYLENOL [Concomitant]

REACTIONS (5)
  - Vomiting [None]
  - Dehydration [None]
  - Anaemia [None]
  - Hepatic enzyme increased [None]
  - Leukopenia [None]

NARRATIVE: CASE EVENT DATE: 20240413
